FAERS Safety Report 16404774 (Version 1)
Quarter: 2019Q2

REPORT INFORMATION
  Report Type: Spontaneous
  Country: US (occurrence: US)
  Receive Date: 20190501
  Receipt Date: 20190501
  Transmission Date: 20190711
  Serious: Yes (Hospitalization)
  Sender: FDA-Public Use
  Company Number: None

PATIENT
  Age: 62 Year
  Sex: Male
  Weight: 87 kg

DRUGS (2)
  1. LITHIUM. [Suspect]
     Active Substance: LITHIUM
     Indication: BIPOLAR I DISORDER
     Route: 048
     Dates: start: 20140610, end: 20190129
  2. HYDROCHLOROTHIAZIDE/LISINOPRIL [Suspect]
     Active Substance: HYDROCHLOROTHIAZIDE\LISINOPRIL
     Indication: HYPERTENSION
     Dosage: ?          OTHER DOSE:12.5/20 MG;?
     Route: 048
     Dates: start: 20181107, end: 20190129

REACTIONS (5)
  - Vomiting [None]
  - Potentiating drug interaction [None]
  - Nausea [None]
  - Toxicity to various agents [None]
  - Barrett^s oesophagus [None]

NARRATIVE: CASE EVENT DATE: 20190129
